FAERS Safety Report 12883873 (Version 1)
Quarter: 2016Q4

REPORT INFORMATION
  Report Type: Spontaneous
  Country: US (occurrence: US)
  Receive Date: 20161026
  Receipt Date: 20161026
  Transmission Date: 20170207
  Serious: No
  Sender: FDA-Public Use
  Company Number: US-PFIZER INC-2016496162

PATIENT
  Sex: Male

DRUGS (8)
  1. MORPHINE SULFATE. [Suspect]
     Active Substance: MORPHINE SULFATE
  2. METHOTREXATE SODIUM. [Suspect]
     Active Substance: METHOTREXATE SODIUM
  3. VALIUM [Suspect]
     Active Substance: DIAZEPAM
  4. BACTRIM [Suspect]
     Active Substance: SULFAMETHOXAZOLE\TRIMETHOPRIM
  5. NOVOCAIN [Suspect]
     Active Substance: PROCAINE HYDROCHLORIDE
  6. CODEINE [Suspect]
     Active Substance: CODEINE
  7. CYMBALTA [Suspect]
     Active Substance: DULOXETINE HYDROCHLORIDE
  8. DILAUDID [Suspect]
     Active Substance: HYDROMORPHONE HYDROCHLORIDE

REACTIONS (1)
  - Drug hypersensitivity [Unknown]
